FAERS Safety Report 4325512-0 (Version None)
Quarter: 2004Q1

REPORT INFORMATION
  Report Type: 
  Country: None (occurrence: None)
  Receive Date: 20040324
  Receipt Date: 20040310
  Transmission Date: 20041129
  Serious: Yes (Hospitalization, Other)
  Sender: FDA-Public Use
  Company Number: 2004017225

PATIENT
  Sex: Male
  Weight: 77.5651 kg

DRUGS (8)
  1. GEODON [Suspect]
     Indication: AGITATION
     Dosage: 40 MG (BID), ORAL
     Route: 048
  2. FLUPHENAZINE [Suspect]
     Indication: ILL-DEFINED DISORDER
  3. VALPROATE SODIUM [Concomitant]
  4. BENZATROPINE MESILATE (BENZATROPINE MESILATE) [Concomitant]
  5. GLUCOSE (GLUCOSE) [Concomitant]
  6. LORATADINE [Concomitant]
  7. DOCUSATE SODIUM (DOCUSATE SODIUM) [Concomitant]
  8. GLUCOSE (GLUCOSE) [Concomitant]

REACTIONS (8)
  - ABNORMAL BEHAVIOUR [None]
  - CONTUSION [None]
  - DIABETES MELLITUS [None]
  - EYE INJURY [None]
  - HEAD INJURY [None]
  - HOSPITALISATION [None]
  - PERIORBITAL HAEMATOMA [None]
  - SWELLING FACE [None]
